FAERS Safety Report 12490368 (Version 1)
Quarter: 2016Q2

REPORT INFORMATION
  Report Type: Spontaneous
  Country: FR (occurrence: FR)
  Receive Date: 20160622
  Receipt Date: 20160622
  Transmission Date: 20160815
  Serious: Yes (Hospitalization, Other)
  Sender: FDA-Public Use
  Company Number: FR-GILEAD-2016-0218436

PATIENT
  Sex: Female

DRUGS (2)
  1. ZYDELIG [Suspect]
     Active Substance: IDELALISIB
     Dosage: 100 MG, UNK
     Route: 065
  2. ZYDELIG [Suspect]
     Active Substance: IDELALISIB
     Indication: CHRONIC LYMPHOCYTIC LEUKAEMIA
     Dosage: 150 MG, UNK
     Route: 065
     Dates: start: 201601, end: 201604

REACTIONS (5)
  - Dehydration [Unknown]
  - Acute kidney injury [Unknown]
  - Diarrhoea [Unknown]
  - Off label use [Unknown]
  - Diarrhoea [Unknown]

NARRATIVE: CASE EVENT DATE: 201604
